FAERS Safety Report 4277724-2 (Version None)
Quarter: 2004Q1

REPORT INFORMATION
  Report Type: 
  Country: None (occurrence: None)
  Receive Date: 20040121
  Receipt Date: 20040107
  Transmission Date: 20041129
  Serious: Yes (Hospitalization)
  Sender: FDA-Public Use
  Company Number: 2004EU000035

PATIENT
  Age: 50 Year
  Sex: Male

DRUGS (4)
  1. PROGRAF [Suspect]
     Indication: HEART AND LUNG TRANSPLANT
     Dosage: UNKNOWN/D, ORAL
     Route: 048
     Dates: start: 20030801, end: 20040101
  2. CELLCEPT [Concomitant]
  3. CORTICOSTEROID NOS (CORTICOSTEROID NOS) [Concomitant]
  4. OROCAL (CALCIUM CARBONATE) [Concomitant]

REACTIONS (1)
  - PULMONARY FIBROSIS [None]
